FAERS Safety Report 7045385-5 (Version None)
Quarter: 2010Q4

REPORT INFORMATION
  Report Type: 
  Country: None (occurrence: None)
  Receive Date: 20101014
  Receipt Date: 20100830
  Transmission Date: 20110411
  Serious: No
  Sender: FDA-Public Use
  Company Number: US-ALLERGAN-1011191US

PATIENT
  Age: 55 Year
  Sex: Female

DRUGS (1)
  1. LATISSE [Suspect]
     Indication: HYPOTRICHOSIS
     Dosage: 1 GTT, QHS
     Dates: start: 20100824, end: 20100826

REACTIONS (3)
  - EYELIDS PRURITUS [None]
  - SCLERAL HYPERAEMIA [None]
  - SKIN HYPERPIGMENTATION [None]
